FAERS Safety Report 9399276 (Version 1)
Quarter: 2013Q3

REPORT INFORMATION
  Report Type: Spontaneous
  Country: US (occurrence: US)
  Receive Date: 20130715
  Receipt Date: 20130715
  Transmission Date: 20140515
  Serious: No
  Sender: FDA-Public Use
  Company Number: US-PFIZER INC-2013205122

PATIENT
  Age: 58 Year
  Sex: Female
  Weight: 116 kg

DRUGS (4)
  1. SKELAXIN [Suspect]
     Indication: PAIN IN EXTREMITY
     Dosage: 800 MG, 4X/DAY
  2. SKELAXIN [Suspect]
     Dosage: 800 MG, 1X/DAY
  3. BENICAR [Concomitant]
     Indication: HYPERTENSION
     Dosage: 20MG/12.5MG DAILY
  4. LORTAB [Concomitant]
     Indication: PAIN
     Dosage: 10 MG, AS NEEDED

REACTIONS (2)
  - Incorrect dose administered [Unknown]
  - Headache [Not Recovered/Not Resolved]
